FAERS Safety Report 12627019 (Version 1)
Quarter: 2016Q3

REPORT INFORMATION
  Report Type: Report from Study
  Country: CA (occurrence: CA)
  Receive Date: 20160805
  Receipt Date: 20160805
  Transmission Date: 20161109
  Serious: Yes (Other)
  Sender: FDA-Public Use
  Company Number: CA-UCBSA-2015021180

PATIENT
  Age: 8 Year
  Sex: Female

DRUGS (16)
  1. FLOVENT [Concomitant]
     Active Substance: FLUTICASONE PROPIONATE
     Indication: PRODUCT USED FOR UNKNOWN INDICATION
  2. OXCARBAZEPINE. [Concomitant]
     Active Substance: OXCARBAZEPINE
     Indication: PRODUCT USED FOR UNKNOWN INDICATION
     Dosage: 33MG/KG/DAY
     Dates: start: 201310, end: 201311
  3. ONDANSETRON [Concomitant]
     Active Substance: ONDANSETRON
     Indication: NAUSEA
     Dosage: UNK
  4. LACOSAMIDE. [Suspect]
     Active Substance: LACOSAMIDE
     Dosage: 150MG IN AM AND 175MG IN PM, 2X/DAY (BID)
     Route: 048
  5. LACOSAMIDE. [Suspect]
     Active Substance: LACOSAMIDE
     Dosage: 175 MG, 2X/DAY (BID)
  6. DIAZEPAM. [Concomitant]
     Active Substance: DIAZEPAM
     Indication: SEIZURE
     Dosage: UNK, AS NEEDED (PRN)
  7. LACOSAMIDE. [Suspect]
     Active Substance: LACOSAMIDE
     Indication: PARTIAL SEIZURES
     Dosage: 175 MG, 2X/DAY (BID)
  8. CLOBAZAM [Concomitant]
     Active Substance: CLOBAZAM
     Dosage: 20 MG, ONCE DAILY (QD) (QHS)
     Dates: start: 201306
  9. SALBUTAMOL [Concomitant]
     Active Substance: ALBUTEROL
     Indication: PRODUCT USED FOR UNKNOWN INDICATION
     Dosage: UNK
  10. LACOSAMIDE. [Suspect]
     Active Substance: LACOSAMIDE
     Indication: OFF LABEL USE
     Dosage: 150 MG, 2X/DAY (BID) (150MG IN THE MORNING AND AND EVENING)
     Route: 048
  11. OXCARBAZEPINE. [Concomitant]
     Active Substance: OXCARBAZEPINE
     Dosage: 2X/DAY (BID), 300MG IN MORNING AND 450MG IN EVENING
  12. ACETAMINOPHEN. [Concomitant]
     Active Substance: ACETAMINOPHEN
     Indication: PAIN
     Dosage: 700 MG, AS NEEDED (PRN)
     Route: 048
  13. CLOBAZAM [Concomitant]
     Active Substance: CLOBAZAM
     Indication: PRODUCT USED FOR UNKNOWN INDICATION
     Dosage: 0.7MG/KG/DAY
  14. BISACODYL. [Concomitant]
     Active Substance: BISACODYL
     Indication: PRODUCT USED FOR UNKNOWN INDICATION
     Route: 054
  15. VITAMIN D [Concomitant]
     Active Substance: CHOLECALCIFEROL
     Indication: PRODUCT USED FOR UNKNOWN INDICATION
     Dosage: 1000 U, DAILY
  16. ONDANSETRON [Concomitant]
     Active Substance: ONDANSETRON
     Indication: VOMITING

REACTIONS (9)
  - Seizure [Unknown]
  - Somnolence [Unknown]
  - Off label use [Unknown]
  - Paraesthesia [Unknown]
  - Pain [Unknown]
  - Apparent death [Recovered/Resolved]
  - Amnesia [Unknown]
  - Generalised tonic-clonic seizure [Unknown]
  - Electroencephalogram abnormal [Not Recovered/Not Resolved]

NARRATIVE: CASE EVENT DATE: 201405
